FAERS Safety Report 8461140-3 (Version None)
Quarter: 2012Q2

REPORT INFORMATION
  Report Type: 
  Country: None (occurrence: None)
  Receive Date: 20120625
  Receipt Date: 20120619
  Transmission Date: 20120825
  Serious: No
  Sender: FDA-Public Use
  Company Number: US-PFIZER INC-2012104197

PATIENT
  Sex: Female

DRUGS (7)
  1. XANAX XR [Suspect]
     Indication: PANIC ATTACK
  2. LEXAPRO [Suspect]
     Indication: DEPRESSION
     Dosage: UNK
     Dates: start: 20040101
  3. ALPRAZOLAM [Suspect]
     Indication: ANXIETY
     Dosage: UNK
     Route: 048
     Dates: start: 20110101, end: 20110101
  4. XANAX XR [Suspect]
     Indication: ANXIETY
     Dosage: 1 MG, 3X/DAY
     Route: 048
     Dates: start: 20040101, end: 20110101
  5. ALPRAZOLAM [Suspect]
     Indication: DEPRESSION
  6. XANAX XR [Suspect]
     Indication: DEPRESSION
  7. ALPRAZOLAM [Suspect]
     Indication: PANIC ATTACK
     Dosage: 1 MG, 3X/DAY
     Route: 048
     Dates: start: 20110101, end: 20110101

REACTIONS (6)
  - FATIGUE [None]
  - MALAISE [None]
  - ANXIETY [None]
  - DRUG INTOLERANCE [None]
  - FEELING ABNORMAL [None]
  - ABDOMINAL DISCOMFORT [None]
